FAERS Safety Report 7713607-0 (Version None)
Quarter: 2011Q3

REPORT INFORMATION
  Report Type: 
  Country: None (occurrence: None)
  Receive Date: 20110826
  Receipt Date: 20110815
  Transmission Date: 20111222
  Serious: Yes (Hospitalization, Other)
  Sender: FDA-Public Use
  Company Number: US-ELI_LILLY_AND_COMPANY-US201108005159

PATIENT
  Sex: Male
  Weight: 72.5 kg

DRUGS (20)
  1. EFFIENT [Suspect]
     Indication: STENT PLACEMENT
     Dosage: 10 MG, QD
     Dates: start: 20110727
  2. HUMULIN N [Suspect]
     Dosage: UNK, UNKNOWN
     Dates: start: 20110809
  3. HUMULIN N [Suspect]
     Dosage: UNK, UNKNOWN
  4. ZOCOR [Concomitant]
     Dosage: UNK
  5. ASPIRIN [Concomitant]
     Dosage: 375 MG, UNK
  6. AMIODARONE HCL [Concomitant]
     Dosage: UNK
  7. HUMALOG [Suspect]
     Indication: DIABETES MELLITUS
     Dosage: UNK, UNKNOWN
     Dates: start: 20060101
  8. HUMALOG [Suspect]
     Dosage: UNK, UNKNOWN
     Dates: start: 20060101
  9. HUMULIN R [Suspect]
     Dosage: UNK, UNKNOWN
     Dates: start: 20110809
  10. LISINOPRIL [Concomitant]
     Dosage: UNK
  11. ZOLOFT [Concomitant]
     Dosage: UNK
  12. NIACIN [Concomitant]
     Dosage: UNK
  13. HUMULIN R [Suspect]
     Dosage: UNK, UNKNOWN
  14. LANTUS [Concomitant]
     Dosage: UNK
     Dates: start: 20060101
  15. ATENOLOL [Concomitant]
     Dosage: UNK
  16. DIGOXIN [Concomitant]
     Dosage: UNK
  17. TRICOR [Concomitant]
     Dosage: UNK
  18. FUROSEMIDE [Concomitant]
     Dosage: 20 MG, QD
  19. PLAVIX [Concomitant]
     Dosage: UNK
  20. SYNTHROID [Concomitant]
     Dosage: UNK

REACTIONS (9)
  - HYPERTENSION [None]
  - DRUG INEFFECTIVE [None]
  - RENAL FAILURE [None]
  - DEHYDRATION [None]
  - CARDIOVASCULAR DISORDER [None]
  - BLOOD GLUCOSE INCREASED [None]
  - BLOOD GLUCOSE DECREASED [None]
  - INCORRECT STORAGE OF DRUG [None]
  - HEADACHE [None]
